FAERS Safety Report 15531138 (Version 1)
Quarter: 2018Q4

REPORT INFORMATION
  Report Type: Report from Study
  Country: US (occurrence: US)
  Receive Date: 20181019
  Receipt Date: 20181019
  Transmission Date: 20190205
  Serious: Yes (Other)
  Sender: FDA-Public Use
  Company Number: US-BRISTOL-MYERS SQUIBB COMPANY-BMS-2018-096426

PATIENT
  Age: 78 Year
  Sex: Male
  Weight: 77.1 kg

DRUGS (2)
  1. HF10 (INVESTIGATIONAL PRODUCT) [Suspect]
     Active Substance: CANERPATUREV
     Indication: METASTATIC MALIGNANT MELANOMA
     Dosage: 0.1 ML, Q2WK
     Route: 036
     Dates: start: 20180307
  2. NIVOLUMAB [Suspect]
     Active Substance: NIVOLUMAB
     Indication: METASTATIC MALIGNANT MELANOMA
     Dosage: 240 MG, Q4WK
     Route: 042
     Dates: start: 20180307, end: 20181010

REACTIONS (1)
  - Basosquamous carcinoma [Recovered/Resolved]

NARRATIVE: CASE EVENT DATE: 20180307
